FAERS Safety Report 7463379-2 (Version None)
Quarter: 2011Q2

REPORT INFORMATION
  Report Type: 
  Country: None (occurrence: None)
  Receive Date: 20110506
  Receipt Date: 20110427
  Transmission Date: 20111010
  Serious: Yes (Hospitalization)
  Sender: FDA-Public Use
  Company Number: A0899074A

PATIENT
  Age: 55 Year
  Sex: Female

DRUGS (3)
  1. ROSIGLITAZONE MALEATE [Suspect]
     Dosage: 4MG TWICE PER DAY
     Route: 048
  2. AVANDIA [Suspect]
     Dosage: 4MG UNKNOWN
     Route: 065
     Dates: start: 20050101, end: 20060821
  3. AVANDAMET [Suspect]
     Route: 048
     Dates: start: 20050317

REACTIONS (3)
  - MYOCARDIAL INFARCTION [None]
  - CORONARY ARTERY DISEASE [None]
  - SYNCOPE [None]
